FAERS Safety Report 4359128-7 (Version None)
Quarter: 2004Q2

REPORT INFORMATION
  Report Type: 
  Country: None (occurrence: None)
  Receive Date: 20040517
  Receipt Date: 20040517
  Transmission Date: 20050107
  Serious: Yes (Hospitalization)
  Sender: FDA-Public Use
  Company Number: None

PATIENT
  Age: 75 Year
  Sex: Male
  Weight: 57.6068 kg

DRUGS (3)
  1. CISPLATIN [Suspect]
     Indication: OESOPHAGEAL CARCINOMA
     Dosage: 56 MG DAY 1,8,22,29,IV
     Route: 042
     Dates: start: 20031103, end: 20031208
  2. IRINOTECAN 65MG/M2 [Suspect]
     Indication: OESOPHAGEAL CARCINOMA
     Dosage: 120 MG DAY 1,8,22,29 IV
     Route: 042
     Dates: start: 20031103, end: 20031208
  3. PEG TUBE FEEDINGS [Concomitant]

REACTIONS (1)
  - PNEUMONIA ASPIRATION [None]
